FAERS Safety Report 5122052-6 (Version None)
Quarter: 2006Q4

REPORT INFORMATION
  Report Type: 
  Country: None (occurrence: None)
  Receive Date: 20061006
  Receipt Date: 20060925
  Transmission Date: 20070319
  Serious: Yes (Other)
  Sender: FDA-Public Use
  Company Number: US-JNJFOC-20060906494

PATIENT
  Sex: Female
  Weight: 54.89 kg

DRUGS (1)
  1. LEVAQUIN [Suspect]
     Indication: SINUSITIS

REACTIONS (4)
  - MUSCLE ATROPHY [None]
  - MYOSITIS [None]
  - PERONEAL NERVE PALSY [None]
  - TENDONITIS [None]
